FAERS Safety Report 4618624-5 (Version None)
Quarter: 2005Q1

REPORT INFORMATION
  Report Type: 
  Country: None (occurrence: None)
  Receive Date: 20050324
  Receipt Date: 20050304
  Transmission Date: 20050727
  Serious: Yes (Hospitalization, Other)
  Sender: FDA-Public Use
  Company Number: USA050393035

PATIENT
  Sex: Male

DRUGS (4)
  1. FORTEO [Suspect]
     Indication: OSTEOPOROSIS
     Dosage: 20 UG/L DAY
     Dates: start: 20050201
  2. METHADONE HCL [Concomitant]
  3. ACTIQ [Concomitant]
  4. XANAX (ALPRAZOLAM DUM) [Concomitant]

REACTIONS (3)
  - ACCIDENTAL OVERDOSE [None]
  - HYPOXIA [None]
  - MENTAL STATUS CHANGES [None]
